FAERS Safety Report 24162728 (Version 1)
Quarter: 2024Q3

REPORT INFORMATION
  Report Type: Spontaneous
  Country: US (occurrence: US)
  Receive Date: 20240801
  Receipt Date: 20240801
  Transmission Date: 20241017
  Serious: No
  Sender: JOHNSON AND JOHNSON
  Company Number: US-JNJFOC-20240769658

PATIENT
  Sex: Female

DRUGS (1)
  1. STELARA [Suspect]
     Active Substance: USTEKINUMAB
     Indication: Product used for unknown indication
     Route: 058

REACTIONS (7)
  - Skin lesion [Unknown]
  - Dyspnoea [Unknown]
  - Cough [Unknown]
  - Vulvovaginal pruritus [Unknown]
  - Fatigue [Unknown]
  - Vulvovaginal burning sensation [Unknown]
  - Rash [Unknown]
